FAERS Safety Report 8251507-0 (Version None)
Quarter: 2012Q2

REPORT INFORMATION
  Report Type: 
  Country: None (occurrence: None)
  Receive Date: 20120402
  Receipt Date: 20120328
  Transmission Date: 20120825
  Serious: Yes (Death, Hospitalization)
  Sender: FDA-Public Use
  Company Number: US-ASTRAZENECA-2011SE50134

PATIENT
  Age: 57 Year
  Sex: Male
  Weight: 76.2 kg

DRUGS (21)
  1. INDOMETHACIN [Concomitant]
     Route: 048
  2. INDOMETHACIN [Concomitant]
     Route: 048
  3. CALCIUM/CALCIUM PILLS [Concomitant]
     Route: 048
  4. PROAIR HFA [Concomitant]
     Dosage: 108 (90 BASE) MG AS NEEDED
     Route: 055
  5. POTASSIUM CHLORIDE [Concomitant]
     Route: 048
  6. CALCITRIOL [Concomitant]
     Route: 048
  7. ENALAPRIL MALEATE [Concomitant]
     Route: 048
  8. ALBUTEROL SULFATE [Concomitant]
     Dosage: 1.25M PRN G/3ML
     Route: 055
  9. MORPHINE SULFATE [Concomitant]
     Route: 048
  10. LEVOTHYROXINE SODIUM [Concomitant]
     Route: 048
  11. BLOOD PRESSURE MEDICATION [Concomitant]
  12. BREATHING MEDICATIONS FOR COPD [Concomitant]
     Indication: CHRONIC OBSTRUCTIVE PULMONARY DISEASE
  13. HYDROCODONE BITARTRATE AND ACETAMINOPHEN [Concomitant]
     Dosage: 10-500 MG PRN
     Route: 048
  14. AMLODIPINE BESYLATE [Concomitant]
     Route: 048
  15. XANAX [Concomitant]
     Route: 048
  16. LOMOTIL [Concomitant]
     Dosage: 2.5-0.25 MG AS NEEDED
     Route: 048
  17. MORPHINE SULFATE [Concomitant]
     Route: 048
  18. ADVAIR DISKUS 100/50 [Concomitant]
     Dosage: 250-50 UG/DOSE TWO TIMES A DAY
     Route: 055
  19. ATENOLOL [Concomitant]
     Route: 048
  20. VANDETANIB [Suspect]
     Indication: THYROID CANCER
     Route: 048
     Dates: start: 20110805
  21. CALCIUM+D [Concomitant]
     Dosage: 600-200 MG-UNIT THREE TIMES A DAY
     Route: 048

REACTIONS (14)
  - HYPERKALAEMIA [None]
  - CHRONIC OBSTRUCTIVE PULMONARY DISEASE [None]
  - HYPOVOLAEMIA [None]
  - PYREXIA [None]
  - VISION BLURRED [None]
  - FACIAL PARESIS [None]
  - COLD SWEAT [None]
  - DYSPHONIA [None]
  - RENAL FAILURE ACUTE [None]
  - PNEUMONIA [None]
  - CONFUSIONAL STATE [None]
  - LEUKOPLAKIA ORAL [None]
  - CHEST DISCOMFORT [None]
  - ASTHENIA [None]
